FAERS Safety Report 22211285 (Version 3)
Quarter: 2023Q4

REPORT INFORMATION
  Report Type: Spontaneous
  Country: US (occurrence: US)
  Receive Date: 20230414
  Receipt Date: 20231114
  Transmission Date: 20240110
  Serious: No
  Sender: FDA-Public Use
  Company Number: US-SA-2023SA115878

PATIENT
  Age: 67 Year
  Sex: Male

DRUGS (4)
  1. ALPROLIX [Suspect]
     Active Substance: EFTRENONACOG ALFA
     Indication: Haemophilia
     Dosage: 5900 U, PRN
     Route: 042
     Dates: start: 202202
  2. ALPROLIX [Suspect]
     Active Substance: EFTRENONACOG ALFA
     Indication: Haemophilia
     Dosage: 5900 U, PRN
     Route: 042
     Dates: start: 202202
  3. ALPROLIX [Suspect]
     Active Substance: EFTRENONACOG ALFA
     Indication: Factor IX deficiency
     Dosage: 5900 U, QW
     Route: 042
     Dates: start: 202202
  4. ALPROLIX [Suspect]
     Active Substance: EFTRENONACOG ALFA
     Indication: Factor IX deficiency
     Dosage: 5900 U, QW
     Route: 042
     Dates: start: 202202

REACTIONS (4)
  - Epistaxis [Unknown]
  - Nasopharyngitis [Unknown]
  - Blood urine present [Recovered/Resolved]
  - Blood urine present [Recovered/Resolved]

NARRATIVE: CASE EVENT DATE: 20230101
